FAERS Safety Report 18944787 (Version 1)
Quarter: 2021Q1

REPORT INFORMATION
  Report Type: Spontaneous
  Country: US (occurrence: US)
  Receive Date: 20210226
  Receipt Date: 20210226
  Transmission Date: 20210420
  Serious: No
  Sender: FDA-Public Use
  Company Number: US-SA-2021SA065800

PATIENT
  Sex: Female

DRUGS (9)
  1. FLUOXETINE [FLUOXETINE HYDROCHLORIDE] [Concomitant]
     Active Substance: FLUOXETINE HYDROCHLORIDE
  2. OMEPRAZOLE [OMEPRAZOLE SODIUM] [Concomitant]
     Active Substance: OMEPRAZOLE SODIUM
  3. MELOXICAM. [Concomitant]
     Active Substance: MELOXICAM
  4. DUPIXENT [Suspect]
     Active Substance: DUPILUMAB
     Dosage: 600 MG, 1X
     Route: 058
  5. CLOPIDOGREL [Concomitant]
     Active Substance: CLOPIDOGREL BISULFATE
  6. ALLEGRATAB [Concomitant]
     Active Substance: FEXOFENADINE HYDROCHLORIDE
  7. ASPIRINE [Concomitant]
     Active Substance: ASPIRIN
  8. ATENOLOL HCL [Concomitant]
  9. METOCLOPRAMIDE. [Concomitant]
     Active Substance: METOCLOPRAMIDE

REACTIONS (2)
  - Immunisation reaction [Unknown]
  - Product dose omission issue [Unknown]
